FAERS Safety Report 16266445 (Version 1)
Quarter: 2019Q2

REPORT INFORMATION
  Report Type: Spontaneous
  Country: FR (occurrence: FR)
  Receive Date: 20190502
  Receipt Date: 20190502
  Transmission Date: 20190711
  Serious: Yes (Life-Threatening, Hospitalization)
  Sender: FDA-Public Use
  Company Number: FR-MYLANLABS-2019M1042439

PATIENT
  Age: 56 Year
  Sex: Male
  Weight: 70 kg

DRUGS (4)
  1. LEVOFLOXACIN. [Suspect]
     Active Substance: LEVOFLOXACIN
     Indication: OSTEITIS
     Dosage: 1000 MILLIGRAM, QD
     Route: 065
     Dates: start: 201809, end: 20181119
  2. VANCOMYCIN [Suspect]
     Active Substance: VANCOMYCIN
     Indication: OSTEITIS
     Dosage: 3 GRAM, QD
     Route: 041
     Dates: start: 20181012, end: 20181119
  3. RIFAMPICINE [Suspect]
     Active Substance: RIFAMPIN
     Indication: OSTEITIS
     Dosage: 1800 MILLIGRAM, QD
     Route: 065
     Dates: start: 20181012, end: 20181119
  4. CEFEPIME [Suspect]
     Active Substance: CEFEPIME HYDROCHLORIDE
     Indication: OSTEITIS
     Dosage: 6 GRAM, QD
     Route: 041
     Dates: start: 201809, end: 20181119

REACTIONS (5)
  - Depressed level of consciousness [Recovered/Resolved]
  - Acute kidney injury [Recovering/Resolving]
  - Confusional state [Recovered/Resolved]
  - Thrombocytopenia [Recovering/Resolving]
  - Encephalopathy [Recovered/Resolved]

NARRATIVE: CASE EVENT DATE: 20181119
